FAERS Safety Report 9055383 (Version 1)
Quarter: 2013Q1

REPORT INFORMATION
  Report Type: Spontaneous
  Country: US (occurrence: US)
  Receive Date: 20130206
  Receipt Date: 20130206
  Transmission Date: 20140127
  Serious: Yes (Other)
  Sender: FDA-Public Use
  Company Number: US-TEVA-382309USA

PATIENT
  Sex: Female

DRUGS (1)
  1. IRBESARTAN [Suspect]

REACTIONS (12)
  - Paralysis [Unknown]
  - Pain [Unknown]
  - Hyperhidrosis [Unknown]
  - Inflammation [Unknown]
  - Headache [Unknown]
  - Neck pain [Unknown]
  - Facial pain [Unknown]
  - Local swelling [Unknown]
  - Swelling face [Unknown]
  - Chest discomfort [Unknown]
  - Swelling [Unknown]
  - Musculoskeletal stiffness [Unknown]
